FAERS Safety Report 15637971 (Version 1)
Quarter: 2018Q4

REPORT INFORMATION
  Report Type: Spontaneous
  Country: US (occurrence: US)
  Receive Date: 20181120
  Receipt Date: 20181120
  Transmission Date: 20190205
  Serious: No
  Sender: FDA-Public Use
  Company Number: US-JNJFOC-20180715656

PATIENT
  Age: 91 Year
  Sex: Female
  Weight: 52 kg

DRUGS (16)
  1. IMBRUVICA [Suspect]
     Active Substance: IBRUTINIB
     Indication: MARGINAL ZONE LYMPHOMA
     Route: 048
     Dates: start: 20180507, end: 2018
  2. ARANESP [Concomitant]
     Active Substance: DARBEPOETIN ALFA
  3. VITAMIN D [Concomitant]
     Active Substance: CHOLECALCIFEROL
  4. ASPIRIN                            /00002701/ [Concomitant]
     Active Substance: ASPIRIN
  5. LISINOPRIL. [Concomitant]
     Active Substance: LISINOPRIL
  6. SIMVASTATIN. [Concomitant]
     Active Substance: SIMVASTATIN
  7. MULTIVITAMINS [Concomitant]
     Active Substance: VITAMINS
  8. COLACE [Concomitant]
     Active Substance: DOCUSATE SODIUM
  9. HYDRALAZINE [Concomitant]
     Active Substance: HYDRALAZINE HYDROCHLORIDE
  10. TOLTERODINE [Concomitant]
     Active Substance: TOLTERODINE
  11. IMBRUVICA [Concomitant]
     Active Substance: IBRUTINIB
     Indication: MARGINAL ZONE LYMPHOMA
     Dosage: CUMULATIVE DOSE TO FIRST REACTION: 18480 MILLIGRAM
     Route: 048
     Dates: start: 20180302, end: 20180506
  12. AMLODIPINE [Concomitant]
     Active Substance: AMLODIPINE BESYLATE
  13. LORAZEPAM. [Concomitant]
     Active Substance: LORAZEPAM
  14. OCUVITE [Concomitant]
     Active Substance: VITAMINS
  15. OMEPRAZOLE. [Concomitant]
     Active Substance: OMEPRAZOLE
  16. TYLENOL [Concomitant]
     Active Substance: ACETAMINOPHEN

REACTIONS (2)
  - Incorrect dose administered [Unknown]
  - Off label use [Unknown]

NARRATIVE: CASE EVENT DATE: 20180507
